FAERS Safety Report 9321893 (Version 1)
Quarter: 2013Q2

REPORT INFORMATION
  Report Type: Spontaneous
  Country: US (occurrence: None)
  Receive Date: 20130528
  Receipt Date: 20130528
  Transmission Date: 20140414
  Serious: Yes (Disabling, Other)
  Sender: FDA-Public Use
  Company Number: 1303-355

PATIENT
  Age: 72 Year
  Sex: Male

DRUGS (1)
  1. EYLEA [Suspect]

REACTIONS (2)
  - Non-infectious endophthalmitis [None]
  - Pseudoendophthalmitis [None]
